FAERS Safety Report 12713661 (Version 1)
Quarter: 2016Q3

REPORT INFORMATION
  Report Type: Spontaneous
  Country: BR (occurrence: BR)
  Receive Date: 20160904
  Receipt Date: 20160904
  Transmission Date: 20161109
  Serious: Yes (Other)
  Sender: FDA-Public Use
  Company Number: BR-AUROBINDO-AUR-APL-2016-11015

PATIENT
  Age: 48 Year
  Sex: Male

DRUGS (1)
  1. OLANZAPINE 10MG [Suspect]
     Active Substance: OLANZAPINE
     Indication: PSYCHOTIC DISORDER
     Dosage: 10 MG, UNK
     Route: 065

REACTIONS (3)
  - Irritability [Recovered/Resolved]
  - Anxiety [Recovered/Resolved]
  - Obsessive-compulsive symptom [Recovered/Resolved]
